FAERS Safety Report 5691294-3 (Version None)
Quarter: 2008Q1

REPORT INFORMATION
  Report Type: 
  Country: None (occurrence: None)
  Receive Date: 20080331
  Receipt Date: 20080318
  Transmission Date: 20080703
  Serious: No
  Sender: FDA-Public Use
  Company Number: 002#2#2008-00063

PATIENT
  Age: 59 Year
  Sex: Female
  Weight: 85 kg

DRUGS (19)
  1. NEUPRO [Suspect]
     Indication: PARKINSON'S DISEASE
     Dosage: 2MG/24H,1 IN 1 D,TRANSDERMAL;  4MG/24H,1 IN 1 D,TRANSDERMAL;6MG/24H,1 IN 1 D,TRANSDERMAL
     Route: 062
     Dates: start: 20071102, end: 20071113
  2. NEUPRO [Suspect]
     Indication: PARKINSON'S DISEASE
     Dosage: 2MG/24H,1 IN 1 D,TRANSDERMAL;  4MG/24H,1 IN 1 D,TRANSDERMAL;6MG/24H,1 IN 1 D,TRANSDERMAL
     Route: 062
     Dates: start: 20071114, end: 20071126
  3. NEUPRO [Suspect]
     Indication: PARKINSON'S DISEASE
     Dosage: 2MG/24H,1 IN 1 D,TRANSDERMAL;  4MG/24H,1 IN 1 D,TRANSDERMAL;6MG/24H,1 IN 1 D,TRANSDERMAL
     Route: 062
     Dates: start: 20071127, end: 20071216
  4. NEUPRO [Suspect]
     Indication: PARKINSON'S DISEASE
     Dosage: 2MG/24H,1 IN 1 D,TRANSDERMAL;  4MG/24H,1 IN 1 D,TRANSDERMAL;6MG/24H,1 IN 1 D,TRANSDERMAL
     Route: 062
     Dates: start: 20071216
  5. DEPAKOTE [Concomitant]
  6. DIAZEPAM [Concomitant]
  7. LAMICTAL [Concomitant]
  8. SYNTHROID [Concomitant]
  9. SELEGILINE HCL [Concomitant]
  10. VICODIN [Concomitant]
  11. LORATADINE [Concomitant]
  12. COLACE [Concomitant]
  13. NEURONTIN [Concomitant]
  14. SEROQUEL [Concomitant]
  15. VITAMIN D [Concomitant]
  16. CALCIUM [Concomitant]
  17. OMEGA [Concomitant]
  18. SENNA [Concomitant]
  19. ASCORBIC ACID [Concomitant]

REACTIONS (10)
  - ANXIETY [None]
  - APPLICATION SITE ERYTHEMA [None]
  - BURNING SENSATION [None]
  - INSOMNIA [None]
  - KELOID SCAR [None]
  - PHARMACEUTICAL PRODUCT COMPLAINT [None]
  - PRURITUS [None]
  - SLEEP ATTACKS [None]
  - SOMNOLENCE [None]
  - WEIGHT INCREASED [None]
